FAERS Safety Report 6469790-0 (Version None)
Quarter: 2009Q4

REPORT INFORMATION
  Report Type: 
  Country: None (occurrence: None)
  Receive Date: 20091203
  Receipt Date: 20071005
  Transmission Date: 20100525
  Serious: Yes (Hospitalization)
  Sender: FDA-Public Use
  Company Number: US-ELI_LILLY_AND_COMPANY-US200710001573

PATIENT
  Sex: Female
  Weight: 83.9 kg

DRUGS (8)
  1. BYETTA [Suspect]
     Indication: TYPE 2 DIABETES MELLITUS
     Dosage: 5 UG, 2/D
     Route: 058
     Dates: start: 20070501
  2. METFORMIN HCL [Concomitant]
     Indication: TYPE 2 DIABETES MELLITUS
     Dosage: UNK, UNKNOWN
  3. ANTI-DIABETICS [Concomitant]
     Indication: TYPE 2 DIABETES MELLITUS
     Dosage: UNK, UNKNOWN
  4. ADVAIR DISKUS 100/50 [Concomitant]
     Indication: ASTHMA
     Dosage: UNK, UNKNOWN
     Route: 055
  5. SINGULAIR [Concomitant]
     Indication: ASTHMA
     Dosage: UNK, UNKNOWN
  6. LEVALBUTEROL HYDROCHLORIDE [Concomitant]
     Indication: ASTHMA
     Dosage: UNK, UNKNOWN
  7. PREDNISONE [Concomitant]
     Indication: ASTHMA
     Dosage: 20 MG, UNKNOWN
     Route: 048
  8. VANCOMYCIN [Concomitant]
     Indication: PNEUMONIA
     Dosage: UNK, UNKNOWN
     Route: 042
     Dates: start: 20070901, end: 20070901

REACTIONS (10)
  - BACTERIAL TEST POSITIVE [None]
  - CHILLS [None]
  - DECREASED APPETITE [None]
  - EARLY SATIETY [None]
  - PNEUMONIA [None]
  - PYREXIA [None]
  - URTICARIA [None]
  - VOMITING [None]
  - WEIGHT DECREASED [None]
  - WHITE BLOOD CELL COUNT INCREASED [None]
